FAERS Safety Report 13471005 (Version 1)
Quarter: 2017Q2

REPORT INFORMATION
  Report Type: Report from Study
  Country: VN (occurrence: VN)
  Receive Date: 20170424
  Receipt Date: 20170424
  Transmission Date: 20170830
  Serious: Yes (Other)
  Sender: FDA-Public Use
  Company Number: VN-ROCHE-1921667

PATIENT

DRUGS (1)
  1. TRASTUZUMAB [Suspect]
     Active Substance: TRASTUZUMAB
     Indication: INVASIVE BREAST CARCINOMA
     Route: 065

REACTIONS (4)
  - Hepatotoxicity [Unknown]
  - Off label use [Unknown]
  - White blood cell count decreased [Unknown]
  - Platelet count decreased [Recovered/Resolved]
